FAERS Safety Report 5834731-3 (Version None)
Quarter: 2008Q3

REPORT INFORMATION
  Report Type: 
  Country: None (occurrence: None)
  Receive Date: 20080801
  Receipt Date: 20080724
  Transmission Date: 20090109
  Serious: Yes (Death, Other)
  Sender: FDA-Public Use
  Company Number: 90179

PATIENT
  Age: 45 Year
  Sex: Male

DRUGS (9)
  1. IBUPROFEN TABLETS [Suspect]
     Dosage: 200 MG ORAL
     Route: 048
  2. DULOXETINE [Concomitant]
  3. ERYHTHROMYCIN [Concomitant]
  4. FERROUS SULFATE TAB [Concomitant]
  5. FLUOXETINE HCL [Concomitant]
  6. GABAPENTIN [Concomitant]
  7. OLANZAPINE [Concomitant]
  8. OMEPRAZOLE [Concomitant]
  9. ACETAMINOPHEN [Concomitant]

REACTIONS (2)
  - CEREBROVASCULAR ACCIDENT [None]
  - GASTROINTESTINAL HAEMORRHAGE [None]
